FAERS Safety Report 21593102 (Version 2)
Quarter: 2023Q1

REPORT INFORMATION
  Report Type: Report from Study
  Country: US (occurrence: US)
  Receive Date: 20221114
  Receipt Date: 20230105
  Transmission Date: 20230418
  Serious: No
  Sender: FDA-Public Use
  Company Number: US-ABBVIE-4196503

PATIENT
  Sex: Female

DRUGS (2)
  1. RINVOQ [Suspect]
     Active Substance: UPADACITINIB
     Indication: Product used for unknown indication
     Route: 048
     Dates: end: 20221103
  2. RINVOQ [Suspect]
     Active Substance: UPADACITINIB
     Indication: Product used for unknown indication
     Route: 048
     Dates: start: 202211, end: 202211

REACTIONS (5)
  - Urinary incontinence [Unknown]
  - Fatigue [Recovered/Resolved]
  - Dysuria [Unknown]
  - Fatigue [Unknown]
  - Kidney infection [Unknown]

NARRATIVE: CASE EVENT DATE: 20220101
